FAERS Safety Report 19402886 (Version 3)
Quarter: 2021Q3

REPORT INFORMATION
  Report Type: Spontaneous
  Country: JP (occurrence: JP)
  Receive Date: 20210611
  Receipt Date: 20210803
  Transmission Date: 20211014
  Serious: Yes (Death, Hospitalization, Other)
  Sender: FDA-Public Use
  Company Number: JP-ABBVIE-21K-087-3944526-00

PATIENT
  Age: 81 Year
  Sex: Female

DRUGS (1)
  1. RINVOQ [Suspect]
     Active Substance: UPADACITINIB
     Indication: RHEUMATOID ARTHRITIS
     Route: 048
     Dates: start: 20210513, end: 20210702

REACTIONS (10)
  - Depressed level of consciousness [Unknown]
  - Respiratory disorder [Unknown]
  - Death [Fatal]
  - Staphylococcal infection [Recovered/Resolved]
  - Fall [Unknown]
  - Hyponatraemia [Unknown]
  - Deep vein thrombosis [Unknown]
  - Pleurisy [Recovering/Resolving]
  - Rib fracture [Unknown]
  - Pulmonary embolism [Unknown]

NARRATIVE: CASE EVENT DATE: 2021
